FAERS Safety Report 4931873-1 (Version None)
Quarter: 2006Q1

REPORT INFORMATION
  Report Type: 
  Country: None (occurrence: None)
  Receive Date: 20060303
  Receipt Date: 20051001
  Transmission Date: 20060701
  Serious: Yes (Hospitalization)
  Sender: FDA-Public Use
  Company Number: PR-MERCK-0510USA01781

PATIENT
  Age: 79 Year
  Sex: Female
  Weight: 77 kg

DRUGS (3)
  1. VIOXX [Suspect]
     Indication: MYALGIA
     Route: 048
     Dates: start: 19990101, end: 20030101
  2. VIOXX [Suspect]
     Route: 048
     Dates: start: 19990101, end: 20030101
  3. VIOXX [Suspect]
     Route: 048
     Dates: start: 19990101, end: 20030101

REACTIONS (38)
  - ACUTE PRERENAL FAILURE [None]
  - ANAEMIA [None]
  - ANGINA PECTORIS [None]
  - ANGIOPATHY [None]
  - ARRHYTHMIA [None]
  - ASPIRATION [None]
  - AZOTAEMIA [None]
  - BRONCHOPNEUMONIA [None]
  - CARDIOVASCULAR DISORDER [None]
  - CEREBROVASCULAR ACCIDENT [None]
  - CHEST PAIN [None]
  - CORONARY ARTERY DISEASE [None]
  - DIABETES MELLITUS [None]
  - ELECTROLYTE IMBALANCE [None]
  - ENTEROBACTER INFECTION [None]
  - HAEMATOMA [None]
  - HYPERLIPIDAEMIA [None]
  - HYPERTENSION [None]
  - IMPAIRED HEALING [None]
  - INFECTED SKIN ULCER [None]
  - INFECTION [None]
  - INJURY [None]
  - LEG AMPUTATION [None]
  - LOCALISED INFECTION [None]
  - MYOCARDIAL INFARCTION [None]
  - NECROSIS [None]
  - ORGAN FAILURE [None]
  - PNEUMONIA ASPIRATION [None]
  - POST PROCEDURAL HAEMORRHAGE [None]
  - POSTOPERATIVE WOUND COMPLICATION [None]
  - PULMONARY EMBOLISM [None]
  - SKIN NECROSIS [None]
  - SKIN ULCER [None]
  - THROMBOSIS [None]
  - URINARY TRACT INFECTION [None]
  - UROSEPSIS [None]
  - VAGINAL HAEMORRHAGE [None]
  - VAGINAL INFECTION [None]
